FAERS Safety Report 10655273 (Version 1)
Quarter: 2014Q4

REPORT INFORMATION
  Report Type: Spontaneous
  Country: US (occurrence: US)
  Receive Date: 20141216
  Receipt Date: 20141216
  Transmission Date: 20150529
  Serious: No
  Sender: FDA-Public Use
  Company Number: US-009507513-1409USA012993

PATIENT
  Age: 30 Year
  Sex: Male

DRUGS (1)
  1. CLARITIN-D 24 HOUR [Suspect]
     Active Substance: LORATADINE\PSEUDOEPHEDRINE SULFATE
     Indication: HYPERSENSITIVITY
     Dosage: UNK, UNKNOWN
     Route: 048

REACTIONS (7)
  - Sneezing [Unknown]
  - Rhinorrhoea [Unknown]
  - Throat irritation [Unknown]
  - Sinus congestion [Unknown]
  - Eye pruritus [Unknown]
  - Drug effect decreased [Unknown]
  - Condition aggravated [Unknown]
